FAERS Safety Report 6242378-2 (Version None)
Quarter: 2009Q3

REPORT INFORMATION
  Report Type: 
  Country: None (occurrence: None)
  Receive Date: 20090622
  Receipt Date: 20090622
  Transmission Date: 20100115
  Serious: Yes (Other)
  Sender: FDA-Public Use
  Company Number: None

PATIENT
  Sex: Male
  Weight: 77.1115 kg

DRUGS (1)
  1. KEPPRA [Suspect]
     Dosage: 500 BID DAW 4 BID

REACTIONS (2)
  - CONVULSION [None]
  - NO THERAPEUTIC RESPONSE [None]
